FAERS Safety Report 6231331-0 (Version None)
Quarter: 2009Q2

REPORT INFORMATION
  Report Type: 
  Country: None (occurrence: None)
  Receive Date: 20090611
  Receipt Date: 20090529
  Transmission Date: 20091009
  Serious: Yes (Hospitalization, Other)
  Sender: FDA-Public Use
  Company Number: DE-WYE-H09574009

PATIENT
  Age: 78 Year
  Sex: Female

DRUGS (9)
  1. PANTOPRAZOLE SODIUM [Suspect]
     Indication: PROPHYLAXIS AGAINST GASTROINTESTINAL ULCER
     Dosage: 40 MG 2X PER 1 DAY ORAL
     Route: 048
  2. CEFOTIAM HYDROCHLORIDE [Suspect]
     Indication: DIVERTICULITIS
     Dosage: 1 G 2X PER 1 DAY INTRAVENOUS
     Route: 042
     Dates: start: 20090206, end: 20090216
  3. ATACAND [Concomitant]
  4. BISOPROLOL FUMARATE [Concomitant]
  5. CLOPIDOGREL [Concomitant]
  6. NOVONORM (REPAGLINIDE) [Concomitant]
  7. VALORON N (NALOXONE HYDROCHLORIDE/TILIDINE HYDROCHLORIDE) [Concomitant]
  8. TIMINOL (CARBAMAZEPINE) [Concomitant]
  9. TORSEMIDE [Concomitant]

REACTIONS (2)
  - DRUG INTERACTION [None]
  - PSEUDOMEMBRANOUS COLITIS [None]
